FAERS Safety Report 9096652 (Version 2)
Quarter: 2013Q1

REPORT INFORMATION
  Report Type: Spontaneous
  Country: US (occurrence: None)
  Receive Date: 20130125
  Receipt Date: 20130305
  Transmission Date: 20140127
  Serious: Yes (Hospitalization)
  Sender: FDA-Public Use
  Company Number: AE-SPE-2013-002

PATIENT
  Age: 29 Year
  Sex: Female
  Weight: 57.35 kg

DRUGS (2)
  1. MEIACT MS (CEFDITOREN PIVOXIL) (NOT SPECIFIED) [Suspect]
     Indication: INFECTION
     Dates: start: 20130107
  2. CHLOMY [Suspect]
     Route: 067

REACTIONS (2)
  - Toxic skin eruption [None]
  - Lymphocyte stimulation test positive [None]
